FAERS Safety Report 8730173 (Version 3)
Quarter: 2012Q4

REPORT INFORMATION
  Report Type: 
  Country: US (occurrence: US)
  Receive Date: 20120817
  Receipt Date: 20121016
  Transmission Date: 20130627
  Serious: Yes (Hospitalization)
  Sender: FDA-Public Use
  Company Number: US-ACTELION-A-US2012-68268

PATIENT
  Age: 25 Year
  Sex: Female
  Weight: 43.84 kg

DRUGS (4)
  1. VELETRI [Suspect]
     Indication: PULMONARY ARTERIAL HYPERTENSION
     Dosage: 39 ng/kg, per min
     Route: 042
     Dates: start: 20120228, end: 201206
  2. VELETRI [Suspect]
     Dosage: 39 ng/kg, per min
     Route: 042
     Dates: start: 20120615
  3. TRACLEER [Concomitant]
     Indication: PRODUCT USED FOR UNKNOWN INDICATION
     Dosage: UNK
     Route: 048
     Dates: start: 20120618
  4. SILDENAFIL [Concomitant]

REACTIONS (7)
  - Poor peripheral circulation [Unknown]
  - Pulmonary arterial hypertension [Unknown]
  - Flushing [Recovered/Resolved]
  - Nausea [Recovered/Resolved]
  - Pain in jaw [Unknown]
  - Back pain [Unknown]
  - Diarrhoea [Unknown]
